FAERS Safety Report 4403981-5 (Version None)
Quarter: 2004Q3

REPORT INFORMATION
  Report Type: 
  Country: None (occurrence: None)
  Receive Date: 20040719
  Receipt Date: 20040705
  Transmission Date: 20050211
  Serious: Yes (Other)
  Sender: FDA-Public Use
  Company Number: DEU-2004-0000899

PATIENT
  Age: 76 Year
  Sex: Female

DRUGS (7)
  1. OXYCODONE HCL [Suspect]
     Indication: PAIN
     Dosage: SEE IMAGE
     Route: 048
     Dates: start: 20040601, end: 20040601
  2. OXYCODONE HCL [Suspect]
     Indication: PAIN
     Dosage: SEE IMAGE
     Route: 048
     Dates: start: 20040617, end: 20040601
  3. OXYCODONE HCL [Suspect]
     Indication: PAIN
     Dosage: SEE IMAGE
     Route: 048
     Dates: start: 20040630, end: 20040601
  4. OXYCODONE HCL [Suspect]
     Indication: PAIN
     Dosage: SEE IMAGE
     Route: 048
     Dates: start: 20040601, end: 20040629
  5. KELTICAN N (URIDINE TRIPHOSPHATE SODIUM, CYTIDINE PHOSPHATE SODIUM) [Concomitant]
  6. FOSAMAX [Concomitant]
  7. CALCIMAGON-D3 (COLECALCIFEROL,CALCIUM CARBONATE) [Concomitant]

REACTIONS (2)
  - CEREBROVASCULAR ACCIDENT [None]
  - DEAFNESS [None]
